FAERS Safety Report 9815076 (Version 1)
Quarter: 2014Q1

REPORT INFORMATION
  Report Type: Report from Study
  Country: GB (occurrence: GB)
  Receive Date: 20140114
  Receipt Date: 20140114
  Transmission Date: 20141002
  Serious: Yes (Death)
  Sender: FDA-Public Use
  Company Number: GB-ROCHE-1332167

PATIENT
  Age: 90 Year
  Sex: Female
  Weight: 90 kg

DRUGS (2)
  1. RITUXIMAB [Suspect]
     Indication: RHEUMATOID ARTHRITIS
     Route: 065
     Dates: start: 20080331
  2. SULPHASALAZINE [Concomitant]

REACTIONS (2)
  - Bronchopneumonia [Fatal]
  - Chronic obstructive pulmonary disease [Fatal]
